FAERS Safety Report 6719601-0 (Version None)
Quarter: 2010Q2

REPORT INFORMATION
  Report Type: 
  Country: None (occurrence: None)
  Receive Date: 20100511
  Receipt Date: 20100503
  Transmission Date: 20101027
  Serious: Yes (Other)
  Sender: FDA-Public Use
  Company Number: ES-JNJFOC-20100501517

PATIENT
  Age: 25 Year
  Sex: Female

DRUGS (5)
  1. RISPERDAL [Suspect]
     Indication: SCHIZOPHRENIA
     Route: 048
  2. RISPERDAL CONSTA [Suspect]
     Indication: SCHIZOPHRENIA
     Route: 030
  3. PRISDAL [Interacting]
     Indication: ANXIETY
     Route: 065
  4. PRISDAL [Interacting]
     Indication: DEPRESSION
     Route: 065
  5. DIAZEPAM [Concomitant]
     Indication: ANXIETY
     Route: 065

REACTIONS (2)
  - DRUG INTERACTION [None]
  - DYSTONIA [None]
